FAERS Safety Report 4372637-X (Version None)
Quarter: 2004Q2

REPORT INFORMATION
  Report Type: 
  Country: None (occurrence: None)
  Receive Date: 20040526
  Receipt Date: 20040512
  Transmission Date: 20050107
  Serious: Yes (Hospitalization)
  Sender: FDA-Public Use
  Company Number: 2004AP02698

PATIENT
  Age: 69 Year
  Sex: Female

DRUGS (17)
  1. IRESSA [Suspect]
     Indication: ADENOCARCINOMA
     Dosage: 250 MG DAILY PO
     Route: 048
     Dates: start: 20030501, end: 20030717
  2. IRESSA [Suspect]
     Indication: NON-SMALL CELL LUNG CANCER
     Dosage: 250 MG DAILY PO
     Route: 048
     Dates: start: 20030501, end: 20030717
  3. IRESSA [Suspect]
     Indication: ADENOCARCINOMA
     Dosage: 250 MG DAILY PO
     Route: 048
     Dates: start: 20031210, end: 20040113
  4. IRESSA [Suspect]
     Indication: NON-SMALL CELL LUNG CANCER
     Dosage: 250 MG DAILY PO
     Route: 048
     Dates: start: 20031210, end: 20040113
  5. IRESSA [Suspect]
     Indication: ADENOCARCINOMA
     Dosage: 250 MG DAILY PO
     Route: 048
     Dates: start: 20040211, end: 20040211
  6. IRESSA [Suspect]
     Indication: NON-SMALL CELL LUNG CANCER
     Dosage: 250 MG DAILY PO
     Route: 048
     Dates: start: 20040211, end: 20040211
  7. ZYRTEC [Concomitant]
  8. SELBEX [Concomitant]
  9. MERISLON [Concomitant]
  10. TAKEPRON [Concomitant]
  11. MS CONTIN [Concomitant]
  12. RADIOTHERAPY [Concomitant]
  13. CISPLATIN [Concomitant]
  14. FARMORBICIN [Concomitant]
  15. GEMCITABINE HYDROCHLORIDE [Concomitant]
  16. CARBOPLATIN [Concomitant]
  17. PACLITAXEL [Concomitant]

REACTIONS (2)
  - ILEUS [None]
  - METASTASES TO ADRENALS [None]
